FAERS Safety Report 15864638 (Version 1)
Quarter: 2019Q1

REPORT INFORMATION
  Report Type: Spontaneous
  Country: US (occurrence: US)
  Receive Date: 20190124
  Receipt Date: 20190124
  Transmission Date: 20190417
  Serious: No
  Sender: FDA-Public Use
  Company Number: US-ALLERGAN-1848319US

PATIENT
  Age: 70 Year
  Sex: Female
  Weight: 56.69 kg

DRUGS (3)
  1. SALINE EYE DROPS [Concomitant]
     Indication: DRY EYE
     Dosage: UNK
     Route: 047
  2. UNSPECIFIED EYE DROPS [Concomitant]
     Active Substance: UNSPECIFIED INGREDIENT
     Indication: DRY EYE
     Dosage: UNK
     Route: 047
  3. PRED MILD [Suspect]
     Active Substance: PREDNISOLONE ACETATE
     Indication: DRY EYE
     Dosage: 1 GTT, 1-2 TIMES DAILY
     Route: 047
     Dates: start: 201801, end: 20181006

REACTIONS (2)
  - Intraocular pressure increased [Not Recovered/Not Resolved]
  - Off label use [Unknown]

NARRATIVE: CASE EVENT DATE: 201801
